FAERS Safety Report 12208345 (Version 2)
Quarter: 2016Q2

REPORT INFORMATION
  Report Type: Spontaneous
  Country: US (occurrence: US)
  Receive Date: 20160324
  Receipt Date: 20160518
  Transmission Date: 20160815
  Serious: Yes (Other)
  Sender: FDA-Public Use
  Company Number: US-BAYER-2016-057457

PATIENT
  Age: 15 Year
  Sex: Female
  Weight: 53.7 kg

DRUGS (10)
  1. VITAMIN A [Concomitant]
     Active Substance: VITAMIN A
     Dosage: UNK UNK, QD
     Route: 048
  2. PROVENTIL HFA [Concomitant]
     Active Substance: ALBUTEROL SULFATE
     Indication: WHEEZING
     Dosage: 2 PUFF(S), PRN,EVERY 4 HOURS
     Route: 055
  3. SKYLA [Suspect]
     Active Substance: LEVONORGESTREL
     Indication: CONTRACEPTION
     Dosage: 14 MG/24HR, CONT
     Route: 015
     Dates: start: 20160215, end: 20160419
  4. ACETAMINOPHEN. [Concomitant]
     Active Substance: ACETAMINOPHEN
     Indication: PAIN
     Dosage: 650 MG, PRN,EVERY 6 HOURS
     Route: 048
  5. PROTONIX [Concomitant]
     Active Substance: PANTOPRAZOLE SODIUM
     Dosage: 40 MG, QD
     Route: 048
  6. ASCORBIN [CALCIUM ASCORBATE] [Concomitant]
     Dosage: UNK UNK, QD
     Route: 048
  7. NIFEREX [Concomitant]
     Active Substance: IRON\POLYSACCHARIDES
     Dosage: 150 MG, BID
     Route: 048
  8. CALAMINE [CALAMINE,ZINC OXIDE] [Concomitant]
     Route: 061
  9. METADATE CD [Concomitant]
     Active Substance: METHYLPHENIDATE HYDROCHLORIDE
     Dosage: 30 MG, QD
     Route: 048
  10. ERGOCALCIFEROL. [Concomitant]
     Active Substance: ERGOCALCIFEROL
     Dosage: UNK UNK, QD
     Route: 048

REACTIONS (4)
  - Vulvovaginal discomfort [None]
  - Procedural haemorrhage [None]
  - Device dislocation [Not Recovered/Not Resolved]
  - Medical device monitoring error [None]

NARRATIVE: CASE EVENT DATE: 2016
